FAERS Safety Report 9896358 (Version 1)
Quarter: 2014Q1

REPORT INFORMATION
  Report Type: Spontaneous
  Country: US (occurrence: US)
  Receive Date: 20140213
  Receipt Date: 20140213
  Transmission Date: 20141002
  Serious: No
  Sender: FDA-Public Use
  Company Number: US-BRISTOL-MYERS SQUIBB COMPANY-19088665

PATIENT
  Age: 53 Year
  Sex: Female
  Weight: 74.83 kg

DRUGS (7)
  1. ORENCIA FOR INJ 250 MG/VIAL [Suspect]
  2. OMEPRAZOLE [Concomitant]
     Dosage: CAPS
  3. CELEBREX [Concomitant]
     Dosage: CAPS
  4. LYRICA [Concomitant]
     Dosage: CAPS
  5. CALCIUM [Concomitant]
  6. CALCIUM + VITAMIN D [Concomitant]
     Dosage: TABS
  7. CYMBALTA [Concomitant]
     Dosage: CAPS

REACTIONS (1)
  - Drug ineffective [Unknown]
